FAERS Safety Report 9670455 (Version 2)
Quarter: 2013Q4

REPORT INFORMATION
  Report Type: Spontaneous
  Country: AU (occurrence: AU)
  Receive Date: 20131106
  Receipt Date: 20131125
  Transmission Date: 20140711
  Serious: Yes (Hospitalization)
  Sender: FDA-Public Use
  Company Number: AU-AMGEN-AUSSP2013076946

PATIENT
  Sex: Female

DRUGS (1)
  1. XGEVA [Suspect]
     Indication: BREAST CANCER METASTATIC
     Dosage: 120 MG, Q4WK
     Route: 058
     Dates: start: 20131001, end: 20131103

REACTIONS (8)
  - Bone pain [Recovered/Resolved]
  - Vomiting [Recovered/Resolved]
  - Nausea [Recovered/Resolved]
  - Back pain [Unknown]
  - Bedridden [Unknown]
  - Hypersomnia [Unknown]
  - Malaise [Unknown]
  - Headache [Unknown]
